FAERS Safety Report 8023808-2 (Version None)
Quarter: 2012Q1

REPORT INFORMATION
  Report Type: 
  Country: None (occurrence: None)
  Receive Date: 20120105
  Receipt Date: 20111222
  Transmission Date: 20120608
  Serious: Yes (Other)
  Sender: FDA-Public Use
  Company Number: CA-JNJFOC-20111210990

PATIENT
  Sex: Female
  Weight: 70 kg

DRUGS (8)
  1. REMICADE [Suspect]
     Dosage: 5TH TREATMENT RECEIVED ON 21-DEC-2011
     Route: 042
     Dates: start: 20111221
  2. ADVAIR DISKUS 100/50 [Concomitant]
  3. ALL OTHER THERAPEUTIC PRODUCTS [Concomitant]
  4. REMICADE [Suspect]
     Indication: COLITIS ULCERATIVE
     Route: 042
     Dates: start: 20110831
  5. MESALAMINE [Concomitant]
  6. SPIRIVA [Concomitant]
  7. ATIVAN [Concomitant]
  8. CALCIUM ACETATE [Concomitant]

REACTIONS (4)
  - BACK PAIN [None]
  - PAIN IN EXTREMITY [None]
  - HYPOAESTHESIA [None]
  - OEDEMA PERIPHERAL [None]
